FAERS Safety Report 11287551 (Version 3)
Quarter: 2015Q3

REPORT INFORMATION
  Report Type: Spontaneous
  Country: US (occurrence: US)
  Receive Date: 20150721
  Receipt Date: 20150821
  Transmission Date: 20151125
  Serious: Yes (Hospitalization)
  Sender: FDA-Public Use
  Company Number: US-JNJCP-30000293537

PATIENT
  Sex: Female
  Weight: 55 kg

DRUGS (6)
  1. VITAMIN D (50,000 IU [Concomitant]
     Indication: FATIGUE
     Dosage: ONCE PER WEEK SINCE SIX MONTHS
  2. NEUTROGENA ULTRA SHEER DRY TOUCH SUNBLOCK SPF 100 PLUS [Suspect]
     Active Substance: AVOBENZONE\HOMOSALATE\OCTISALATE\OCTOCRYLENE\OXYBENZONE
     Indication: PROPHYLAXIS
     Dosage: QUARTER TEASPOON SIZE AMOUNT EVERY DAY
     Route: 061
  3. NEUTROGENA ULTRA SHEER DRY TOUCH SUNSCREEN BROAD SPECTRUM SPF55 [Suspect]
     Active Substance: AVOBENZONE\HOMOSALATE\OCTISALATE\OCTOCRYLENE\OXYBENZONE
     Indication: PROPHYLAXIS
     Dosage: ONE FOURTH TEASPOON
     Route: 061
     Dates: end: 20150701
  4. FORTEO INJECTIONS [Concomitant]
     Dosage: ONCE PER NIGHT SINCE ELEVEN MONTHS
  5. NEUTROGENA ULTRA SHEER DRY TOUCH SUNBLOCK SPF 100 PLUS [Suspect]
     Active Substance: AVOBENZONE\HOMOSALATE\OCTISALATE\OCTOCRYLENE\OXYBENZONE
     Indication: PROPHYLAXIS
     Dosage: QUARTER TEASPOON AMOUNT DAILY ONCE OR TWICE PER DAY
     Route: 061
     Dates: end: 20150701
  6. NEUTROGENA ULTRA SHEER DRY TOUCH SUNSCREEN BROAD SPECTRUM SPF45 [Suspect]
     Active Substance: AVOBENZONE\HOMOSALATE\OCTISALATE\OCTOCRYLENE\OXYBENZONE
     Indication: PROPHYLAXIS
     Dosage: ONE FOURTH, TEASPOON
     Route: 061
     Dates: end: 20150701

REACTIONS (8)
  - Expired product administered [Unknown]
  - Feeling abnormal [Recovering/Resolving]
  - Palpitations [Recovering/Resolving]
  - Product expiration date issue [Unknown]
  - Application site discolouration [Recovering/Resolving]
  - Dyspnoea [Recovering/Resolving]
  - Product lot number issue [Unknown]
  - Blood pressure increased [Recovering/Resolving]

NARRATIVE: CASE EVENT DATE: 201506
